FAERS Safety Report 18024816 (Version 1)
Quarter: 2020Q3

REPORT INFORMATION
  Report Type: Spontaneous
  Country: US (occurrence: US)
  Receive Date: 20200715
  Receipt Date: 20200715
  Transmission Date: 20201103
  Serious: Yes (Other)
  Sender: FDA-Public Use
  Company Number: None

PATIENT
  Age: 82 Year
  Sex: Female
  Weight: 95.5 kg

DRUGS (8)
  1. REMDESIVIR EUA PRODUCT [Suspect]
     Active Substance: REMDESIVIR
     Indication: ACUTE RESPIRATORY DISTRESS SYNDROME
     Route: 040
     Dates: start: 20200706, end: 20200715
  2. NOREPINEPHRINE 5 MCG/MIN IV CONTINUOUSLY [Concomitant]
     Dates: start: 20200708, end: 20200715
  3. PROPOFOL 50 MCG/KG/MIN IV CONTINUOUSLY [Concomitant]
     Dates: start: 20200707, end: 20200710
  4. DEXAMETHASONE 6 MG IV DAILY [Concomitant]
     Dates: start: 20200701, end: 20200711
  5. CISATRACURIUM 37.5 MG/HR IV CONTINUOUS [Concomitant]
     Dates: start: 20200707, end: 20200715
  6. REMDESIVIR EUA PRODUCT [Suspect]
     Active Substance: REMDESIVIR
     Indication: COVID-19
     Route: 040
     Dates: start: 20200706, end: 20200715
  7. FENTANYL 50 MCG/HR IV CONTINUOUSLY [Concomitant]
     Dates: start: 20200707, end: 20200715
  8. TOCILIZUMAB 400 MG IV X2 [Concomitant]
     Dates: start: 20200706, end: 20200707

REACTIONS (1)
  - Transaminases increased [None]

NARRATIVE: CASE EVENT DATE: 20200712
